FAERS Safety Report 8166421 (Version 2)
Quarter: 2014Q1

REPORT INFORMATION
  Report Type: Spontaneous
  Country: US (occurrence: US)
  Receive Date: 20111003
  Receipt Date: 20140325
  Transmission Date: 20141002
  Serious: Yes (Other)
  Sender: FDA-Public Use
  Company Number: US-US-EMD SERONO, INC.-7086058

PATIENT
  Age: 27 Year
  Sex: Female

DRUGS (1)
  1. REBIF [Suspect]
     Indication: MULTIPLE SCLEROSIS
     Route: 058
     Dates: start: 20110719, end: 2012

REACTIONS (6)
  - Intentional self-injury [Recovered/Resolved]
  - Limb discomfort [Not Recovered/Not Resolved]
  - Emotional disorder [Unknown]
  - Mood altered [Unknown]
  - Sexual dysfunction [Not Recovered/Not Resolved]
  - Depression [Unknown]
